FAERS Safety Report 9393432 (Version 1)
Quarter: 2013Q3

REPORT INFORMATION
  Report Type: Spontaneous
  Country: US (occurrence: None)
  Receive Date: 20130709
  Receipt Date: 20130709
  Transmission Date: 20140515
  Serious: No
  Sender: FDA-Public Use
  Company Number: None

PATIENT
  Age: 49 Year
  Sex: Male

DRUGS (2)
  1. RIBAVIRIN [Suspect]
     Dosage: IN AM
     Route: 048
     Dates: start: 20130206
  2. PEGASYS [Suspect]
     Indication: HEPATITIS C
     Dates: start: 20130206

REACTIONS (2)
  - Rash pruritic [None]
  - Eye swelling [None]
